FAERS Safety Report 9790977 (Version 3)
Quarter: 2014Q1

REPORT INFORMATION
  Report Type: Spontaneous
  Country: CN (occurrence: CN)
  Receive Date: 20131231
  Receipt Date: 20140117
  Transmission Date: 20141002
  Serious: Yes (Death, Other)
  Sender: FDA-Public Use
  Company Number: CN-ABBVIE-13P-035-1184864-00

PATIENT
  Age: 43 Year
  Sex: Female

DRUGS (3)
  1. ENANTONE [Suspect]
     Indication: ADENOMYOSIS
     Route: 050
     Dates: start: 20131224, end: 20131224
  2. VITAMIN C [Concomitant]
     Indication: ANAEMIA
  3. FERROGLYCINE SULFATE COMPLEX [Concomitant]
     Indication: ANAEMIA

REACTIONS (6)
  - Pulmonary embolism [Fatal]
  - Circulatory collapse [Fatal]
  - Respiratory failure [Fatal]
  - Renal failure [Fatal]
  - Haemorrhagic anaemia [Unknown]
  - Adenomyosis [Unknown]
